FAERS Safety Report 7958861-5 (Version None)
Quarter: 2012Q1

REPORT INFORMATION
  Report Type: 
  Country: None (occurrence: None)
  Receive Date: 20111201
  Receipt Date: 20110701
  Transmission Date: 20120608
  Serious: Yes (Hospitalization)
  Sender: FDA-Public Use
  Company Number: 2011HGS-002290

PATIENT
  Age: 38 Year
  Sex: Female
  Weight: 51 kg

DRUGS (5)
  1. ALPRAZOLAM [Concomitant]
  2. REBAMIPIDE [Concomitant]
  3. HYDROXYCHLOROQUINE SULFATE [Concomitant]
  4. BELIMUMAB [Suspect]
     Indication: SYSTEMIC LUPUS ERYTHEMATOSUS
     Dosage: 1 MG/KG, 1 IN 28 D, INTRAVENOUS DRIP
     Route: 041
     Dates: start: 20080212
  5. PREDNISOLONE [Concomitant]

REACTIONS (1)
  - INTRADUCTAL PAPILLOMA OF BREAST [None]
